FAERS Safety Report 4311262-3 (Version None)
Quarter: 2004Q1

REPORT INFORMATION
  Report Type: 
  Country: None (occurrence: None)
  Receive Date: 20040304
  Receipt Date: 20040220
  Transmission Date: 20041129
  Serious: Yes (Death)
  Sender: FDA-Public Use
  Company Number: WAES 0402BEL00021

PATIENT
  Age: 33 Year
  Sex: Male
  Weight: 48 kg

DRUGS (3)
  1. CANCIDAS [Suspect]
     Indication: ASPERGILLOSIS
     Route: 042
     Dates: start: 20040123, end: 20040123
  2. CANCIDAS [Suspect]
     Route: 042
     Dates: start: 20040124, end: 20040202
  3. FLUCONAZOLE [Concomitant]
     Route: 042
     Dates: start: 20031226, end: 20040123

REACTIONS (1)
  - DEATH [None]
